FAERS Safety Report 4813566-4 (Version None)
Quarter: 2005Q4

REPORT INFORMATION
  Report Type: 
  Country: None (occurrence: None)
  Receive Date: 20051028
  Receipt Date: 20050224
  Transmission Date: 20060501
  Serious: No
  Sender: FDA-Public Use
  Company Number: US-GLAXOSMITHKLINE-A0547183A

PATIENT
  Sex: Female

DRUGS (8)
  1. ADVAIR DISKUS 100/50 [Suspect]
     Indication: ASTHMA
     Route: 055
  2. MAXZIDE [Concomitant]
     Route: 065
  3. ALBUTEROL [Concomitant]
     Route: 055
  4. UNKNOWN MEDICATION [Concomitant]
     Route: 065
  5. LEVOXYL [Concomitant]
     Route: 065
  6. DIGITEK [Concomitant]
     Route: 065
  7. SINGULAIR [Concomitant]
  8. PREDNISONE [Concomitant]

REACTIONS (2)
  - COUGH [None]
  - DYSPNOEA [None]
